FAERS Safety Report 15635847 (Version 2)
Quarter: 2018Q4

REPORT INFORMATION
  Report Type: Report from Study
  Country: None (occurrence: US)
  Receive Date: 20181120
  Receipt Date: 20181124
  Transmission Date: 20190205
  Serious: Yes (Hospitalization)
  Sender: FDA-Public Use
  Company Number: US-ABBVIE-18K-163-2393058-00

PATIENT
  Age: 62 Year
  Sex: Male
  Weight: 154.36 kg

DRUGS (2)
  1. CARBON MONOXIDE [Suspect]
     Active Substance: CARBON MONOXIDE
     Indication: PRODUCT USED FOR UNKNOWN INDICATION
     Route: 065
     Dates: start: 201710, end: 201803
  2. HUMIRA [Suspect]
     Active Substance: ADALIMUMAB
     Indication: COLITIS ULCERATIVE
     Route: 058
     Dates: start: 2016

REACTIONS (4)
  - Pneumonia [Recovered/Resolved]
  - Amnesia [Recovering/Resolving]
  - Mobility decreased [Recovered/Resolved]
  - Carbon monoxide poisoning [Recovering/Resolving]

NARRATIVE: CASE EVENT DATE: 201803
